FAERS Safety Report 21866357 (Version 1)
Quarter: 2023Q1

REPORT INFORMATION
  Report Type: Spontaneous
  Country: CN (occurrence: CN)
  Receive Date: 20230116
  Receipt Date: 20230116
  Transmission Date: 20230418
  Serious: Yes (Life-Threatening, Other)
  Sender: FDA-Public Use
  Company Number: CN-PFIZER INC-PV202300006882

PATIENT
  Age: 63 Year
  Sex: Male

DRUGS (8)
  1. PACLITAXEL [Suspect]
     Active Substance: PACLITAXEL
     Indication: Non-small cell lung cancer
     Dosage: 270 MG, CYCLIC (156 MG/M2), CYCLE 1
     Dates: start: 20211224
  2. PACLITAXEL [Suspect]
     Active Substance: PACLITAXEL
     Dosage: 270 MG, CYCLIC, CYCLE 2
     Dates: start: 20220117
  3. PACLITAXEL [Suspect]
     Active Substance: PACLITAXEL
     Dosage: 270 MG, CYCLIC, CYCLE 3
     Dates: start: 20220208
  4. CARBOPLATIN [Suspect]
     Active Substance: CARBOPLATIN
     Indication: Non-small cell lung cancer
     Dosage: 450 MG, CYCLIC, CYCLE 1
     Dates: start: 20211224
  5. CARBOPLATIN [Suspect]
     Active Substance: CARBOPLATIN
     Dosage: 450 MG, CYCLIC, CYCLE 2
     Dates: start: 20220117
  6. CARBOPLATIN [Suspect]
     Active Substance: CARBOPLATIN
     Dosage: 450 MG, CYCLIC, CYCLE 3
     Dates: start: 20220208
  7. PEMBROLIZUMAB [Suspect]
     Active Substance: PEMBROLIZUMAB
     Indication: Non-small cell lung cancer
     Dosage: 200 MG, CYCLIC, CYCLE 1
     Dates: start: 20211224
  8. PEMBROLIZUMAB [Suspect]
     Active Substance: PEMBROLIZUMAB
     Dosage: 200 MG, CYCLIC, CYCLE 2
     Dates: start: 20220117

REACTIONS (3)
  - Interstitial lung disease [Recovered/Resolved]
  - Enterocolitis [Recovering/Resolving]
  - Bronchial fistula [Recovered/Resolved]

NARRATIVE: CASE EVENT DATE: 20220130
